FAERS Safety Report 7501589-6 (Version None)
Quarter: 2011Q2

REPORT INFORMATION
  Report Type: 
  Country: None (occurrence: None)
  Receive Date: 20110524
  Receipt Date: 20110512
  Transmission Date: 20111010
  Serious: Yes (Death)
  Sender: FDA-Public Use
  Company Number: DK-WATSON-2011-07026

PATIENT
  Age: 58 Year

DRUGS (7)
  1. DIAZEPAM [Suspect]
     Indication: ANXIETY
     Route: 065
  2. FLUNITRAZEPAM [Suspect]
     Indication: PRODUCT USED FOR UNKNOWN INDICATION
  3. CITALOPRAM HYDROBROMIDE [Suspect]
     Indication: PRODUCT USED FOR UNKNOWN INDICATION
     Route: 048
  4. ALPRAZOLAM [Suspect]
     Indication: ANXIETY
     Route: 048
  5. MIANSERIN [Suspect]
     Indication: PRODUCT USED FOR UNKNOWN INDICATION
     Route: 065
  6. KETOBEMIDONE [Suspect]
     Indication: PRODUCT USED FOR UNKNOWN INDICATION
  7. AMLODIPINE BESYLATE [Suspect]
     Indication: PRODUCT USED FOR UNKNOWN INDICATION
     Route: 048

REACTIONS (1)
  - DEATH [None]
